FAERS Safety Report 4583686-0 (Version None)
Quarter: 2005Q1

REPORT INFORMATION
  Report Type: 
  Country: None (occurrence: None)
  Receive Date: 20050216
  Receipt Date: 20050204
  Transmission Date: 20050727
  Serious: Yes (Life-Threatening, Other)
  Sender: FDA-Public Use
  Company Number: FR-BRISTOL-MYERS SQUIBB COMPANY-12850202

PATIENT
  Age: 72 Year
  Sex: Male

DRUGS (6)
  1. CAPTEA TABS [Suspect]
     Indication: ESSENTIAL HYPERTENSION
     Dosage: 0.5 U TABLETS
     Route: 048
  2. MEPRONIZINE [Suspect]
     Dosage: 1 TABLET PER DAY
     Route: 048
  3. METOPROLOL TARTRATE [Suspect]
     Indication: ESSENTIAL HYPERTENSION
     Dosage: 50 MG TABLETS; 100 MG PER DAY
     Route: 048
  4. RISPERDAL [Suspect]
     Route: 048
  5. XANAX [Suspect]
     Indication: DEPRESSION
     Route: 048
  6. KARDEGIC [Suspect]
     Indication: ACUTE MYOCARDIAL INFARCTION
     Route: 048

REACTIONS (6)
  - APGAR SCORE LOW [None]
  - CHOKING [None]
  - COGNITIVE DETERIORATION [None]
  - CYANOSIS [None]
  - DEPRESSED MOOD [None]
  - DYSPHAGIA [None]
